FAERS Safety Report 6294218-3 (Version None)
Quarter: 2009Q3

REPORT INFORMATION
  Report Type: 
  Country: None (occurrence: None)
  Receive Date: 20090803
  Receipt Date: 20090312
  Transmission Date: 20100115
  Serious: No
  Sender: FDA-Public Use
  Company Number: A0772962A

PATIENT
  Age: 52 Year
  Sex: Female

DRUGS (1)
  1. NICORETTE [Suspect]
     Dates: start: 20090307, end: 20090310

REACTIONS (6)
  - DYSGEUSIA [None]
  - GINGIVAL BLISTER [None]
  - NICOTINE DEPENDENCE [None]
  - ORAL DISCOMFORT [None]
  - OROPHARYNGEAL BLISTERING [None]
  - TONGUE BLISTERING [None]
